FAERS Safety Report 7203058-X (Version None)
Quarter: 2010Q4

REPORT INFORMATION
  Report Type: 
  Country: None (occurrence: None)
  Receive Date: 20101229
  Receipt Date: 20101211
  Transmission Date: 20110411
  Serious: No
  Sender: FDA-Public Use
  Company Number: US-B.I. PHARMACEUTICALS,INC./RIDGEFIELD-2010-BP-14437BP

PATIENT
  Sex: Female

DRUGS (2)
  1. PRADAXA [Suspect]
     Indication: ATRIAL FIBRILLATION
     Dosage: 300 MG
     Route: 048
     Dates: start: 20101115
  2. METOPROLOL [Concomitant]
     Indication: CARDIAC DISORDER

REACTIONS (4)
  - DECREASED APPETITE [None]
  - DYSGEUSIA [None]
  - MELAENA [None]
  - NAUSEA [None]
